FAERS Safety Report 19505786 (Version 1)
Quarter: 2021Q3

REPORT INFORMATION
  Report Type: Spontaneous
  Country: DE (occurrence: DE)
  Receive Date: 20210708
  Receipt Date: 20210708
  Transmission Date: 20211014
  Serious: Yes (Other)
  Sender: FDA-Public Use
  Company Number: DE-AUROBINDO-AUR-APL-2021-028793

PATIENT
  Age: 79 Year
  Sex: Female

DRUGS (3)
  1. DOCETAXEL. [Suspect]
     Active Substance: DOCETAXEL
     Indication: ADENOCARCINOMA
     Dosage: UNK
     Route: 065
     Dates: start: 201804, end: 201807
  2. VARGATEF [Suspect]
     Active Substance: NINTEDANIB
     Dosage: 150 MILLIGRAM, 150, 1?0?1
     Route: 065
     Dates: start: 201808, end: 202105
  3. VARGATEF [Suspect]
     Active Substance: NINTEDANIB
     Indication: ADENOCARCINOMA
     Dosage: 200 MILLIGRAM, TWO TIMES A DAY 200, 1?0?1
     Route: 065
     Dates: start: 201804, end: 201807

REACTIONS (2)
  - Gastrointestinal toxicity [Unknown]
  - Disease progression [Unknown]

NARRATIVE: CASE EVENT DATE: 201808
